FAERS Safety Report 8492538-5 (Version None)
Quarter: 2012Q2

REPORT INFORMATION
  Report Type: 
  Country: None (occurrence: None)
  Receive Date: 20120619
  Receipt Date: 20120608
  Transmission Date: 20120825
  Serious: Yes (Other)
  Sender: FDA-Public Use
  Company Number: 2012032074

PATIENT
  Age: 38 Year
  Sex: Female

DRUGS (1)
  1. RHO(D) IMMUNE GLOBULIN NOS [Suspect]
     Indication: PROPHYLAXIS AGAINST RH ISOIMMUNISATION

REACTIONS (3)
  - CAESAREAN SECTION [None]
  - MATERNAL EXPOSURE DURING PREGNANCY [None]
  - PREMATURE DELIVERY [None]
